FAERS Safety Report 13031542 (Version 1)
Quarter: 2016Q4

REPORT INFORMATION
  Report Type: Report from Study
  Country: US (occurrence: US)
  Receive Date: 20161215
  Receipt Date: 20161215
  Transmission Date: 20170207
  Serious: Yes (Life-Threatening)
  Sender: FDA-Public Use
  Company Number: US-AMGEN-USASL2016173308

PATIENT
  Age: 75 Year
  Sex: Female

DRUGS (6)
  1. ENBREL [Suspect]
     Active Substance: ETANERCEPT
     Indication: RHEUMATOID ARTHRITIS
     Dosage: UNK MG, UNK
     Route: 065
  2. ENBREL [Suspect]
     Active Substance: ETANERCEPT
     Indication: SCOLIOSIS
     Dosage: UNK MG, UNK
     Route: 065
     Dates: start: 2015
  3. REMICADE [Concomitant]
     Active Substance: INFLIXIMAB
  4. METHOTREXATE. [Concomitant]
     Active Substance: METHOTREXATE
     Dosage: UNK
  5. ENBREL [Suspect]
     Active Substance: ETANERCEPT
     Indication: OSTEOARTHRITIS
     Dosage: 50 MG, UNK
     Route: 065
  6. CELEBREX [Concomitant]
     Active Substance: CELECOXIB
     Dosage: UNK

REACTIONS (8)
  - Injection site pain [Unknown]
  - Cough [Unknown]
  - Arthritis [Not Recovered/Not Resolved]
  - Off label use [Unknown]
  - Infectious mononucleosis [Unknown]
  - Neck pain [Not Recovered/Not Resolved]
  - Drug dose omission [Unknown]
  - Spinal pain [Not Recovered/Not Resolved]

NARRATIVE: CASE EVENT DATE: 2016
